FAERS Safety Report 7463347-0 (Version None)
Quarter: 2011Q2

REPORT INFORMATION
  Report Type: 
  Country: None (occurrence: None)
  Receive Date: 20110506
  Receipt Date: 20110503
  Transmission Date: 20111010
  Serious: Yes (Other)
  Sender: FDA-Public Use
  Company Number: TR-PFIZER INC-2011085136

PATIENT
  Age: 56 Year
  Sex: Male
  Weight: 105 kg

DRUGS (3)
  1. METFORMIN HYDROCHLORIDE [Concomitant]
     Dosage: 850 MG, 1X/DAY
     Route: 048
  2. CO-DIOVAN [Concomitant]
     Dosage: 160/125 MG DAILY
     Route: 048
  3. SOMAVERT [Suspect]
     Indication: ACROMEGALY
     Dosage: 10 MG, 1X/DAY
     Route: 058
     Dates: start: 20110405, end: 20110428

REACTIONS (1)
  - HYPOGLYCAEMIA [None]
